FAERS Safety Report 6746037-9 (Version None)
Quarter: 2010Q2

REPORT INFORMATION
  Report Type: 
  Country: None (occurrence: None)
  Receive Date: 20100528
  Receipt Date: 20100517
  Transmission Date: 20101027
  Serious: Yes (Disabling)
  Sender: FDA-Public Use
  Company Number: US-ELI_LILLY_AND_COMPANY-US201002000762

PATIENT
  Sex: Female

DRUGS (20)
  1. FORTEO [Suspect]
     Indication: OSTEOPENIA
     Dosage: 20 UG, DAILY (1/D)
     Dates: start: 20090913
  2. HUMALOG [Suspect]
     Dosage: 1 D/F, UNK
  3. TRICOR [Concomitant]
     Dosage: 48 MG, DAILY (1/D)
  4. SERTRALINE HCL [Concomitant]
     Dosage: 100 MG, DAILY (1/D)
  5. VYTORIN [Concomitant]
     Dosage: UNK, DAILY (1/D)
  6. METOPROLOL TARTRATE [Concomitant]
     Dosage: 25 MG, DAILY (1/D)
  7. AVALIDE [Concomitant]
     Dosage: UNK, DAILY (1/D)
  8. VITAMIN E /00110501/ [Concomitant]
     Dosage: 400 IU/KG, UNK
  9. GRAPE SEED EXTRACT [Concomitant]
     Dosage: 100 MG, DAILY (1/D)
  10. VITAMIN B COMPLEX CAP [Concomitant]
     Dosage: UNK, 2/D
  11. FISH OIL [Concomitant]
     Dosage: 1200 MG, DAILY (1/D)
  12. COQ10 [Concomitant]
     Dosage: 300 MG, DAILY (1/D)
  13. BIOTIN [Concomitant]
     Dosage: 5000 MG, DAILY (1/D)
  14. ASPIRIN [Concomitant]
     Dosage: 81 MG, 2/D
  15. BENADRYL [Concomitant]
     Dosage: 25 MG, EACH EVENING
  16. VITAMIN C [Concomitant]
     Dosage: 500 MG, DAILY (1/D)
  17. VITAMIN D [Concomitant]
     Dosage: 2000 IU, DAILY (1/D)
  18. CENTRUM SILVER [Concomitant]
     Dosage: UNK, DAILY (1/D)
  19. OXYCONTIN [Concomitant]
     Dosage: UNK, EACH EVENING
  20. HYDROCODONE [Concomitant]
     Dosage: UNK, 3/D

REACTIONS (3)
  - GAIT DISTURBANCE [None]
  - KYPHOSIS [None]
  - PERIPHERAL NERVE LESION [None]
